FAERS Safety Report 4277019-7 (Version None)
Quarter: 2004Q1

REPORT INFORMATION
  Report Type: 
  Country: None (occurrence: None)
  Receive Date: 20040112
  Receipt Date: 20031230
  Transmission Date: 20041129
  Serious: Yes (Death, Other)
  Sender: FDA-Public Use
  Company Number: 12452942

PATIENT
  Sex: Female

DRUGS (2)
  1. METHOTREXATE [Suspect]
     Indication: PSORIASIS
     Dosage: 1 DOSAGE FORM, 1/1 WEEK ORAL
     Route: 048
     Dates: start: 19940101
  2. FOLIC ACID [Concomitant]

REACTIONS (4)
  - CREATININE RENAL CLEARANCE INCREASED [None]
  - MUCOSAL INFLAMMATION [None]
  - OVERDOSE [None]
  - PANCYTOPENIA [None]
